FAERS Safety Report 7911823-6 (Version None)
Quarter: 2011Q4

REPORT INFORMATION
  Report Type: 
  Country: None (occurrence: None)
  Receive Date: 20111114
  Receipt Date: 20110926
  Transmission Date: 20120403
  Serious: Yes (Life-Threatening, Hospitalization)
  Sender: FDA-Public Use
  Company Number: SE-ROCHE-779539

PATIENT
  Sex: Male

DRUGS (10)
  1. XELODA [Suspect]
     Dosage: DOSE REDUCED.
     Route: 048
  2. CILAXORAL [Concomitant]
     Dosage: 7.5 MG/ML
     Dates: start: 20110822
  3. SUCRALFATE [Concomitant]
     Dosage: 2G/10 ML
     Dates: start: 20110822
  4. ALPRAZOLAM [Concomitant]
     Dates: start: 20110822
  5. EPIRUBICIN HYDROCHLORIDE [Suspect]
     Indication: GASTRIC CANCER
     Dosage: FREQUENCY: 3 WEEKSLAST DOSE PRIOR TO SAE: 04 MAY 2011
     Route: 042
     Dates: start: 20110324, end: 20110504
  6. OMEPRAZOLE [Concomitant]
  7. MOVIPREP [Concomitant]
     Dates: start: 20110828
  8. XELODA [Suspect]
     Indication: GASTRIC CANCER
     Dosage: FREQ: BID FOR 2 WKS, 3 WKS, BID 5 X PWK, EVERY 5 WKSLAST DOSE: 26 AUG 2011
     Route: 048
  9. ASPIRIN [Concomitant]
  10. CISPLATIN [Suspect]
     Indication: GASTRIC CANCER
     Route: 042
     Dates: start: 20110801

REACTIONS (4)
  - ABDOMINAL PAIN [None]
  - PULMONARY EMBOLISM [None]
  - GASTRIC PERFORATION [None]
  - FATIGUE [None]
